FAERS Safety Report 6485761-2 (Version None)
Quarter: 2009Q4

REPORT INFORMATION
  Report Type: 
  Country: None (occurrence: None)
  Receive Date: 20091204
  Receipt Date: 20091130
  Transmission Date: 20100525
  Serious: Yes (Death)
  Sender: FDA-Public Use
  Company Number: 443072

PATIENT
  Age: 47 Year
  Sex: Male
  Weight: 90 kg

DRUGS (4)
  1. PRECEDEX [Suspect]
     Indication: SEDATION
     Dosage: 02. TITRATED TO 0.7, INTRAVENOUS
     Route: 042
     Dates: start: 20091102, end: 20091104
  2. PROPOFOL [Concomitant]
  3. ATIVAN [Concomitant]
  4. FENTANYL [Concomitant]

REACTIONS (1)
  - DEATH [None]
